FAERS Safety Report 14205866 (Version 1)
Quarter: 2017Q4

REPORT INFORMATION
  Report Type: Spontaneous
  Country: US (occurrence: US)
  Receive Date: 20171120
  Receipt Date: 20171120
  Transmission Date: 20180321
  Serious: No
  Sender: FDA-Public Use
  Company Number: US-009507513-1710USA015117

PATIENT
  Age: 6 Year
  Sex: Female

DRUGS (9)
  1. PEGINTRON [Suspect]
     Active Substance: PEGINTERFERON ALFA-2B
     Indication: LYMPHATIC DISORDER
     Dosage: WEEKLY INJECTIONS
     Route: 042
  2. ZOLEDRONIC ACID [Concomitant]
     Active Substance: ZOLEDRONIC ACID
     Indication: LYMPHATIC DISORDER
     Dosage: 6 MONTHLY INTRAVENOUS INJECTIONS
     Route: 042
  3. DOXYCYCLINE. [Concomitant]
     Active Substance: DOXYCYCLINE
     Indication: LYMPHATIC DISORDER
     Dosage: MULTIPLE SESSIONS OF TRANS-CATHETER SCLEROSANT INJECTION
  4. ALCOHOL. [Concomitant]
     Active Substance: ALCOHOL
     Indication: LYMPHATIC DISORDER
     Dosage: MULTIPLE SESSIONS OF TRANS-CATHETER SCLEROSANT INJECTION
  5. SIROLIMUS. [Concomitant]
     Active Substance: SIROLIMUS
     Indication: LYMPHATIC DISORDER
     Dosage: DAILY
     Route: 048
  6. DOXYCYCLINE. [Concomitant]
     Active Substance: DOXYCYCLINE
     Indication: SCLEROTHERAPY
  7. SODIUM TETRADECYL SULFATE [Concomitant]
     Active Substance: SODIUM TETRADECYL SULFATE
     Indication: LYMPHATIC DISORDER
     Dosage: MULTIPLE SESSIONS OF TRANS-CATHETER SCLEROSANT INJECTION
  8. SODIUM TETRADECYL SULFATE [Concomitant]
     Active Substance: SODIUM TETRADECYL SULFATE
     Indication: SCLEROTHERAPY
  9. ALCOHOL. [Concomitant]
     Active Substance: ALCOHOL
     Indication: SCLEROTHERAPY

REACTIONS (1)
  - Product use in unapproved indication [Unknown]
